FAERS Safety Report 8321879-7 (Version None)
Quarter: 2012Q2

REPORT INFORMATION
  Report Type: 
  Country: None (occurrence: None)
  Receive Date: 20120430
  Receipt Date: 20111125
  Transmission Date: 20120825
  Serious: Yes (Life-Threatening, Hospitalization)
  Sender: FDA-Public Use
  Company Number: DK-VIIV HEALTHCARE LIMITED-B0798514A

PATIENT
  Sex: Male
  Weight: 70 kg

DRUGS (5)
  1. ZIAGEN [Suspect]
     Indication: HIV INFECTION CDC GROUP III
     Route: 048
     Dates: start: 20070101, end: 20111122
  2. ADRIAMYCIN PFS [Concomitant]
     Indication: HODGKIN'S DISEASE
  3. DACARBAZINE [Concomitant]
     Indication: HODGKIN'S DISEASE
  4. VINBLASTINE SULFATE [Concomitant]
     Indication: HODGKIN'S DISEASE
  5. BLEOMYCIN SULFATE [Concomitant]
     Indication: HODGKIN'S DISEASE

REACTIONS (1)
  - ACUTE MYOCARDIAL INFARCTION [None]
